FAERS Safety Report 10656905 (Version 1)
Quarter: 2014Q4

REPORT INFORMATION
  Report Type: Report from Study
  Country: GB (occurrence: GB)
  Receive Date: 20141217
  Receipt Date: 20141217
  Transmission Date: 20150529
  Serious: Yes (Hospitalization, Other)
  Sender: FDA-Public Use
  Company Number: GB-ROCHE-1509591

PATIENT
  Age: 102 Year
  Sex: Female

DRUGS (2)
  1. RANIBIZUMAB [Suspect]
     Active Substance: RANIBIZUMAB
     Indication: AGE-RELATED MACULAR DEGENERATION
     Dosage: 0.5MG
     Route: 050
     Dates: start: 20130114
  2. RANIBIZUMAB [Suspect]
     Active Substance: RANIBIZUMAB
     Route: 050
     Dates: start: 20140327

REACTIONS (4)
  - Transient ischaemic attack [Recovered/Resolved]
  - Pain in extremity [Unknown]
  - Dementia [Unknown]
  - Sarcopenia [Unknown]

NARRATIVE: CASE EVENT DATE: 20140612
